FAERS Safety Report 7813817-8 (Version None)
Quarter: 2011Q4

REPORT INFORMATION
  Report Type: 
  Country: None (occurrence: None)
  Receive Date: 20111014
  Receipt Date: 20111011
  Transmission Date: 20120403
  Serious: No
  Sender: FDA-Public Use
  Company Number: US-PFIZER INC-2011242972

PATIENT
  Sex: Female
  Weight: 78 kg

DRUGS (2)
  1. PREMARIN [Suspect]
     Dosage: UNK
     Route: 067
  2. PREMARIN [Concomitant]
     Dosage: 1.25 MG, UNK

REACTIONS (1)
  - VAGINAL INFECTION [None]
